FAERS Safety Report 11920005 (Version 2)
Quarter: 2016Q1

REPORT INFORMATION
  Report Type: Other
  Country: None (occurrence: FR)
  Receive Date: 20160115
  Receipt Date: 20160126
  Transmission Date: 20160526
  Serious: Yes (Hospitalization, Other)
  Sender: FDA-Public Use
  Company Number: FR-CONCORDIA PHARMACEUTICALS INC.-CO-KX-FR-2016-001

PATIENT
  Age: 34 Year
  Sex: Male

DRUGS (1)
  1. KAYEXALATE [Suspect]
     Active Substance: SODIUM POLYSTYRENE SULFONATE
     Indication: HYPERKALAEMIA
     Route: 048

REACTIONS (2)
  - Rectal haemorrhage [Unknown]
  - Large intestinal ulcer [Unknown]
